FAERS Safety Report 11933286 (Version 1)
Quarter: 2016Q1

REPORT INFORMATION
  Report Type: Spontaneous
  Country: US (occurrence: US)
  Receive Date: 20160121
  Receipt Date: 20160121
  Transmission Date: 20160526
  Serious: No
  Sender: FDA-Public Use
  Company Number: US-TEVA-575622USA

PATIENT
  Sex: Female

DRUGS (19)
  1. VITAMIN B [Concomitant]
     Active Substance: VITAMIN B
  2. LISINOPRIL. [Concomitant]
     Active Substance: LISINOPRIL
  3. GLIPIZIDE. [Concomitant]
     Active Substance: GLIPIZIDE
  4. ALLOPURINOL. [Concomitant]
     Active Substance: ALLOPURINOL
  5. SIMVASTATIN. [Concomitant]
     Active Substance: SIMVASTATIN
  6. ALPHA LIPOIC ACID [Concomitant]
     Active Substance: .ALPHA.-LIPOIC ACID
  7. OXYGEN. [Concomitant]
     Active Substance: OXYGEN
  8. OMEPRAZOLE. [Concomitant]
     Active Substance: OMEPRAZOLE
  9. GABAPENTIN. [Concomitant]
     Active Substance: GABAPENTIN
  10. FUROSEMIDE. [Concomitant]
     Active Substance: FUROSEMIDE
  11. ASPIRIN. [Concomitant]
     Active Substance: ASPIRIN
  12. ADVAIR HFA [Concomitant]
     Active Substance: FLUTICASONE PROPIONATE\SALMETEROL XINAFOATE
  13. LORAZEPAM. [Concomitant]
     Active Substance: LORAZEPAM
  14. LIDOCAINE. [Concomitant]
     Active Substance: LIDOCAINE
  15. SPIRIVA [Concomitant]
     Active Substance: TIOTROPIUM BROMIDE MONOHYDRATE
  16. COENZYME Q10 [Concomitant]
     Active Substance: UBIDECARENONE
  17. METFORMIN [Suspect]
     Active Substance: METFORMIN HYDROCHLORIDE
     Indication: TYPE 2 DIABETES MELLITUS
     Dosage: 2000 MILLIGRAM DAILY;
     Route: 065
     Dates: start: 200707
  18. HUMULIN NOS [Concomitant]
     Active Substance: INSULIN HUMAN
  19. VITAMIN D [Concomitant]
     Active Substance: CHOLECALCIFEROL

REACTIONS (1)
  - Diarrhoea [Recovering/Resolving]

NARRATIVE: CASE EVENT DATE: 2013
